FAERS Safety Report 6343855-6 (Version None)
Quarter: 2009Q3

REPORT INFORMATION
  Report Type: 
  Country: None (occurrence: None)
  Receive Date: 20090908
  Receipt Date: 20090902
  Transmission Date: 20100115
  Serious: Yes (Other)
  Sender: FDA-Public Use
  Company Number: FR-AMGEN-UK362700

PATIENT

DRUGS (1)
  1. NPLATE [Suspect]
     Indication: APLASTIC ANAEMIA
     Route: 065

REACTIONS (4)
  - HEPATIC ENZYME INCREASED [None]
  - MEGAKARYOCYTES ABNORMAL [None]
  - OFF LABEL USE [None]
  - THERAPEUTIC RESPONSE DECREASED [None]
